FAERS Safety Report 7298340-4 (Version None)
Quarter: 2011Q1

REPORT INFORMATION
  Report Type: 
  Country: None (occurrence: None)
  Receive Date: 20110214
  Receipt Date: 20110214
  Transmission Date: 20110831
  Serious: Yes (Other)
  Sender: FDA-Public Use
  Company Number: None

PATIENT
  Age: 37 Year
  Sex: Female
  Weight: 61.2356 kg

DRUGS (2)
  1. LEVAQUIN [Suspect]
     Indication: SINUSITIS BACTERIAL
     Dosage: 500 MG QD PO
     Route: 048
     Dates: start: 20110103, end: 20110108
  2. ALLEGRA D 24 HOUR [Concomitant]

REACTIONS (1)
  - TENDONITIS [None]
